FAERS Safety Report 5382548-9 (Version None)
Quarter: 2007Q3

REPORT INFORMATION
  Report Type: 
  Country: None (occurrence: None)
  Receive Date: 20070703
  Receipt Date: 20070209
  Transmission Date: 20080115
  Serious: Yes (Hospitalization)
  Sender: FDA-Public Use
  Company Number: 07-000346

PATIENT
  Age: 43 Year
  Sex: Female
  Weight: 58.5 kg

DRUGS (3)
  1. ESTROSTEP FE [Suspect]
     Indication: HOT FLUSH
     Dosage: 20-30-35 MCG/1MG, QD, ORAL
     Route: 048
     Dates: start: 20051201, end: 20060623
  2. FOLIC ACID [Concomitant]
  3. GABAPENTIN [Concomitant]

REACTIONS (2)
  - PULMONARY EMBOLISM [None]
  - THROMBOSIS [None]
